FAERS Safety Report 7077681 (Version 2)
Quarter: 2014Q3

REPORT INFORMATION
  Report Type: Spontaneous
  Country: US (occurrence: None)
  Receive Date: 20090803
  Receipt Date: 20140822
  Transmission Date: 20150326
  Serious: Yes (Other)
  Sender: FDA-Public Use
  Company Number: 2009S1005922

PATIENT
  Age: 77 Year
  Sex: Female

DRUGS (12)
  1. BUSPIRONE [Concomitant]
     Active Substance: BUSPIRONE HYDROCHLORIDE
  2. MIACALCIN (CALCITONIN, SALMON) [Concomitant]
  3. CELEBREX [Concomitant]
     Active Substance: CELECOXIB
  4. PREMARIN (ESTROGENS CONJUGATED) [Concomitant]
  5. SYNTHROID [Concomitant]
     Active Substance: LEVOTHYROXINE SODIUM
  6. ASPIRIN (ACETYLSALICYLIC ACID) [Concomitant]
     Active Substance: ASPIRIN
  7. BEXTRA (PARECOXIB SODIUM) [Concomitant]
     Active Substance: PARECOXIB SODIUM
  8. FOSAMAX [Concomitant]
     Active Substance: ALENDRONATE SODIUM
  9. PHOSPHO-SODA [Suspect]
     Active Substance: SODIUM PHOSPHATE, DIBASIC\SODIUM PHOSPHATE, MONOBASIC
     Indication: COLONOSCOPY
     Dosage: 2 IN 1 D
     Route: 048
     Dates: start: 20040620, end: 20040621
  10. BENICAR [Concomitant]
     Active Substance: OLMESARTAN MEDOXOMIL
  11. NORVASC [Concomitant]
     Active Substance: AMLODIPINE BESYLATE
  12. HYDROCHLOROTHIAZIDE. [Concomitant]
     Active Substance: HYDROCHLOROTHIAZIDE

REACTIONS (6)
  - Diverticulum [None]
  - Nephrogenic anaemia [None]
  - Feeling jittery [None]
  - Hypertension [None]
  - Renal osteodystrophy [None]
  - Renal failure chronic [None]

NARRATIVE: CASE EVENT DATE: 20041025
